FAERS Safety Report 26196310 (Version 1)
Quarter: 2025Q4

REPORT INFORMATION
  Report Type: Spontaneous
  Country: CN (occurrence: CN)
  Receive Date: 20251224
  Receipt Date: 20251224
  Transmission Date: 20260118
  Serious: Yes (Death)
  Sender: ASTELLAS
  Company Number: CN-ASTELLAS-2025-AER-071448

PATIENT
  Age: 71 Year
  Sex: Female

DRUGS (1)
  1. PADCEV [Suspect]
     Active Substance: ENFORTUMAB VEDOTIN-EJFV
     Indication: Transitional cell carcinoma
     Dosage: MONOTHERAPY/DAY 1 AND DAY 8, EVERY 3 WEEKS
     Route: 042
     Dates: start: 20251121

REACTIONS (4)
  - Death [Fatal]
  - Abdominal pain [Unknown]
  - Asthenia [Unknown]
  - Gait inability [Unknown]

NARRATIVE: CASE EVENT DATE: 20251218
